FAERS Safety Report 6126191-2 (Version None)
Quarter: 2009Q1

REPORT INFORMATION
  Report Type: 
  Country: None (occurrence: None)
  Receive Date: 20090320
  Receipt Date: 20090313
  Transmission Date: 20090719
  Serious: Yes (Other)
  Sender: FDA-Public Use
  Company Number: B0564428A

PATIENT
  Age: 82 Year
  Sex: Female

DRUGS (2)
  1. SEREVENT [Suspect]
     Indication: EMPHYSEMA
     Dosage: 50MCG TWICE PER DAY
     Route: 055
     Dates: start: 20090301, end: 20090307
  2. SPIRIVA [Concomitant]
     Route: 055

REACTIONS (2)
  - ENOPHTHALMOS [None]
  - EYELID PTOSIS [None]
